FAERS Safety Report 5163887-3 (Version None)
Quarter: 2006Q4

REPORT INFORMATION
  Report Type: 
  Country: None (occurrence: None)
  Receive Date: 20061204
  Receipt Date: 20011010
  Transmission Date: 20070319
  Serious: Yes (Hospitalization, Disabling)
  Sender: FDA-Public Use
  Company Number: 11024213

PATIENT
  Age: 1 Day
  Sex: Male

DRUGS (4)
  1. ZERIT [Suspect]
     Dosage: EXPOSURE DURING FIRST 3 WEEKS OF GESTATION.
     Route: 064
  2. VIDEX [Suspect]
     Dosage: EXPOSURE DURING THE FIRST 3 WEEKS OF GESTATION.
     Route: 064
  3. RETROVIR [Suspect]
     Dosage: EXPOSURE DURING THE LAST WEEKS OF GESTATION.
     Route: 064
     Dates: start: 20001128, end: 20010128
  4. RETROVIR [Suspect]
     Indication: PROPHYLAXIS
     Dosage: 100 MG/ML CONCENTRATION
     Route: 048
     Dates: start: 20010128, end: 20010311

REACTIONS (13)
  - ATRIAL SEPTAL DEFECT [None]
  - BLOOD LACTIC ACID INCREASED [None]
  - BLOOD PYRUVIC ACID DECREASED [None]
  - CARDIOMYOPATHY [None]
  - COARCTATION OF THE AORTA [None]
  - HEARING IMPAIRED [None]
  - HEART DISEASE CONGENITAL [None]
  - HYPERTONIA [None]
  - HYPOTONIA [None]
  - PREGNANCY [None]
  - PSYCHOMOTOR SKILLS IMPAIRED [None]
  - VENTRICULAR SEPTAL DEFECT [None]
  - VISION ABNORMAL NEONATAL [None]
